FAERS Safety Report 5811705-X (Version None)
Quarter: 2008Q3

REPORT INFORMATION
  Report Type: 
  Country: None (occurrence: None)
  Receive Date: 20080716
  Receipt Date: 20080711
  Transmission Date: 20090109
  Serious: Yes (Death, Hospitalization)
  Sender: FDA-Public Use
  Company Number: A0737210A

PATIENT
  Sex: Female

DRUGS (2)
  1. CARVEDILOL [Suspect]
     Dosage: 12.5MG TWICE PER DAY
     Route: 048
     Dates: start: 20080705
  2. BETA BLOCKER [Concomitant]

REACTIONS (3)
  - CARDIAC ARREST [None]
  - EJECTION FRACTION DECREASED [None]
  - PNEUMOTHORAX [None]
